FAERS Safety Report 9785224 (Version 1)
Quarter: 2013Q4

REPORT INFORMATION
  Report Type: Spontaneous
  Country: US (occurrence: None)
  Receive Date: 20131224
  Receipt Date: 20131224
  Transmission Date: 20140711
  Serious: Yes (Hospitalization)
  Sender: FDA-Public Use
  Company Number: 2013US002234

PATIENT
  Age: 60 Year
  Sex: Male

DRUGS (1)
  1. ICLUSIG (PONATINIB) TABLET, 45MG [Suspect]
     Indication: ACUTE MYELOID LEUKAEMIA
     Route: 048
     Dates: start: 20130610

REACTIONS (1)
  - Investigation [None]
